FAERS Safety Report 11518469 (Version 6)
Quarter: 2019Q4

REPORT INFORMATION
  Report Type: Spontaneous
  Country: US (occurrence: US)
  Receive Date: 20150917
  Receipt Date: 20191218
  Transmission Date: 20200122
  Serious: Yes (Other)
  Sender: FDA-Public Use
  Company Number: US-PFIZER INC-2015311104

PATIENT
  Age: 54 Year
  Sex: Female
  Weight: 48.27 kg

DRUGS (6)
  1. CHANTIX [Suspect]
     Active Substance: VARENICLINE TARTRATE
     Dosage: 1 MG, 2X/DAY (FULL BLUE PILL TWICE A DAY)
     Route: 048
     Dates: end: 201603
  2. AMBIEN [Concomitant]
     Active Substance: ZOLPIDEM TARTRATE
     Indication: SLEEP DISORDER
     Dosage: UNK
  3. CHANTIX [Suspect]
     Active Substance: VARENICLINE TARTRATE
     Indication: SMOKING CESSATION THERAPY
     Dosage: 0.5 MG, 2X/DAY(HALF A TABLET TWICE A DAY/TOOK ONE HALF A FULL BLUE PILL TWICE A DAY)
     Route: 048
     Dates: start: 2015
  4. FOSAMAX [Concomitant]
     Active Substance: ALENDRONATE SODIUM
  5. CHANTIX [Suspect]
     Active Substance: VARENICLINE TARTRATE
     Dosage: 0.5 MG, DAILY (DAILY X 3 DAYS)
  6. CHANTIX [Suspect]
     Active Substance: VARENICLINE TARTRATE
     Dosage: 0.5 MG, 2X/DAY(TWICE DAILY X 3DAYS)

REACTIONS (8)
  - Dysuria [Recovered/Resolved]
  - Asthenia [Recovered/Resolved]
  - Choking [Unknown]
  - Product prescribing error [Unknown]
  - Eating disorder [Recovered/Resolved]
  - Confusional state [Unknown]
  - Dysphagia [Unknown]
  - Incoherent [Unknown]
